FAERS Safety Report 20818126 (Version 1)
Quarter: 2022Q2

REPORT INFORMATION
  Report Type: Spontaneous
  Country: US (occurrence: US)
  Receive Date: 20220512
  Receipt Date: 20220512
  Transmission Date: 20220721
  Serious: No
  Sender: FDA-Public Use
  Company Number: US-PFIZER INC-202101877867

PATIENT
  Sex: Female

DRUGS (1)
  1. CALAN SR [Suspect]
     Active Substance: VERAPAMIL HYDROCHLORIDE
     Indication: Migraine
     Dosage: 120 MG

REACTIONS (3)
  - Off label use [Unknown]
  - Frustration tolerance decreased [Unknown]
  - Drug effective for unapproved indication [Unknown]
